FAERS Safety Report 22021810 (Version 1)
Quarter: 2023Q1

REPORT INFORMATION
  Report Type: Spontaneous
  Country: US (occurrence: None)
  Receive Date: 20230218
  Receipt Date: 20230218
  Transmission Date: 20230417
  Serious: Yes (Disabling, Other)
  Sender: FDA-Public Use
  Company Number: None

PATIENT
  Age: 68 Year
  Sex: Male
  Weight: 65.25 kg

DRUGS (7)
  1. LEVOFLOXACIN [Suspect]
     Active Substance: LEVOFLOXACIN
     Indication: Escherichia infection
     Dosage: OTHER QUANTITY : 1 TABLET(S)?FREQUENCY : DAILY?
     Route: 048
     Dates: start: 20220527, end: 20220531
  2. HYDROCODONE [Suspect]
     Active Substance: HYDROCODONE
  3. IBUPROFEN [Suspect]
     Active Substance: IBUPROFEN
  4. ACETAMINOPHEN [Suspect]
     Active Substance: ACETAMINOPHEN
  5. DICLOFENAC SODIUM [Suspect]
     Active Substance: DICLOFENAC SODIUM
  6. VITAMINS [Concomitant]
     Active Substance: VITAMINS
  7. ACETAMINOPHEN\HYDROCODONE [Concomitant]
     Active Substance: ACETAMINOPHEN\HYDROCODONE

REACTIONS (10)
  - Feeling abnormal [None]
  - Pain [None]
  - Anger [None]
  - General physical health deterioration [None]
  - Neuralgia [None]
  - Inguinal hernia [None]
  - Gait inability [None]
  - Dysstasia [None]
  - Bedridden [None]
  - Therapeutic product effect decreased [None]

NARRATIVE: CASE EVENT DATE: 20220527
